FAERS Safety Report 13011080 (Version 3)
Quarter: 2018Q4

REPORT INFORMATION
  Report Type: Spontaneous
  Country: AT (occurrence: AT)
  Receive Date: 20161208
  Receipt Date: 20181122
  Transmission Date: 20190204
  Serious: Yes (Death, Hospitalization, Other)
  Sender: FDA-Public Use
  Company Number: AT-AMGEN-AUTSP2016173364

PATIENT
  Age: 48 Year
  Sex: Female

DRUGS (5)
  1. VECTIBIX [Suspect]
     Active Substance: PANITUMUMAB
     Indication: RECTOSIGMOID CANCER
     Dosage: 6 MG/KG, UNK (OVER 60 MIN)
     Route: 013
     Dates: start: 2016
  2. FOLINIC ACID [Concomitant]
     Active Substance: LEUCOVORIN
     Indication: RECTOSIGMOID CANCER
     Dosage: 200 MG/M2, UNK
     Dates: start: 2016
  3. 5-FLUOROURACIL [Concomitant]
     Active Substance: FLUOROURACIL
     Indication: RECTOSIGMOID CANCER
     Dosage: 200 MG/M2, UNK (THROUGH A PUMP OVER 22 H)
     Route: 040
     Dates: start: 2016
  4. OXALIPLATIN. [Concomitant]
     Active Substance: OXALIPLATIN
     Indication: RECTOSIGMOID CANCER
     Dosage: 85 MG/M2, UNK (OVER 2 H)
     Dates: start: 2016
  5. 5-FLUOROURACIL [Concomitant]
     Active Substance: FLUOROURACIL
     Dosage: 400 MG/KG, UNK (THROUGH A PUMP OVER 22 H)

REACTIONS (4)
  - Neoplasm progression [Fatal]
  - Encephalopathy [Unknown]
  - Incorrect route of product administration [Unknown]
  - Device dislocation [Unknown]

NARRATIVE: CASE EVENT DATE: 2016
